FAERS Safety Report 7296622-3 (Version None)
Quarter: 2011Q1

REPORT INFORMATION
  Report Type: 
  Country: None (occurrence: None)
  Receive Date: 20110216
  Receipt Date: 20110209
  Transmission Date: 20110831
  Serious: Yes (Death)
  Sender: FDA-Public Use
  Company Number: PHHY2011US11021

PATIENT
  Sex: Male

DRUGS (1)
  1. EXJADE [Suspect]
     Dosage: 250 MG, 7QD
     Route: 048
     Dates: start: 20100301, end: 20100801

REACTIONS (3)
  - RENAL FAILURE [None]
  - ABDOMINAL DISCOMFORT [None]
  - JAUNDICE [None]
